FAERS Safety Report 17620785 (Version 1)
Quarter: 2020Q2

REPORT INFORMATION
  Report Type: Report from Study
  Country: IN (occurrence: IN)
  Receive Date: 20200403
  Receipt Date: 20200403
  Transmission Date: 20200713
  Serious: Yes (Death)
  Sender: FDA-Public Use
  Company Number: NVSC2020IN090250

PATIENT
  Sex: Male

DRUGS (1)
  1. REVOLADE [Suspect]
     Active Substance: ELTROMBOPAG
     Indication: APLASTIC ANAEMIA
     Dosage: 75 MG, QD
     Route: 048
     Dates: start: 20190816

REACTIONS (2)
  - Aplastic anaemia [Fatal]
  - Disease progression [Fatal]
